FAERS Safety Report 26143560 (Version 1)
Quarter: 2025Q4

REPORT INFORMATION
  Report Type: Spontaneous
  Country: US (occurrence: US)
  Receive Date: 20251211
  Receipt Date: 20251211
  Transmission Date: 20260118
  Serious: No
  Sender: PHARMACOSMOS A/S
  Company Number: US-NEBO-714279

PATIENT
  Sex: Female

DRUGS (1)
  1. MONOFERRIC [Suspect]
     Active Substance: FERRIC DERISOMALTOSE
     Indication: Iron deficiency anaemia
     Dates: start: 20161113, end: 20161113

REACTIONS (2)
  - Rash [Unknown]
  - Maternal exposure during pregnancy [Recovered/Resolved]
